FAERS Safety Report 7111275-2 (Version None)
Quarter: 2010Q4

REPORT INFORMATION
  Report Type: 
  Country: None (occurrence: None)
  Receive Date: 20101118
  Receipt Date: 20101104
  Transmission Date: 20110411
  Serious: Yes (Other)
  Sender: FDA-Public Use
  Company Number: PHHY2010JP75122

PATIENT
  Age: 57 Year
  Sex: Female

DRUGS (2)
  1. ZOMETA [Suspect]
     Indication: METASTASES TO BONE
     Dosage: UNK
  2. SANDOSTATIN [Suspect]
     Indication: INSULINOMA
     Dosage: UNK

REACTIONS (4)
  - HYPOGLYCAEMIA [None]
  - METASTASES TO BONE [None]
  - METASTATIC PAIN [None]
  - THERAPEUTIC EMBOLISATION [None]
